FAERS Safety Report 7340472-6 (Version None)
Quarter: 2011Q1

REPORT INFORMATION
  Report Type: 
  Country: None (occurrence: None)
  Receive Date: 20110309
  Receipt Date: 20110301
  Transmission Date: 20110831
  Serious: Yes (Other)
  Sender: FDA-Public Use
  Company Number: US-JNJFOC-20110301634

PATIENT
  Age: 80 Year
  Sex: Male
  Weight: 81.19 kg

DRUGS (2)
  1. TYLENOL (CAPLET) [Suspect]
     Indication: ARTHRITIS
     Route: 048
  2. TYLENOL (CAPLET) [Suspect]
     Indication: ARTHRALGIA
     Route: 048

REACTIONS (4)
  - COGNITIVE DISORDER [None]
  - INTENTIONAL DRUG MISUSE [None]
  - CONFUSIONAL STATE [None]
  - HALLUCINATION [None]
